FAERS Safety Report 8135747-7 (Version None)
Quarter: 2012Q1

REPORT INFORMATION
  Report Type: 
  Country: None (occurrence: None)
  Receive Date: 20120214
  Receipt Date: 20120206
  Transmission Date: 20120608
  Serious: Yes (Hospitalization)
  Sender: FDA-Public Use
  Company Number: US-GLAXOSMITHKLINE-A0965059A

PATIENT
  Age: 62 Year
  Sex: Female
  Weight: 81.7 kg

DRUGS (1)
  1. ARZERRA [Suspect]
     Indication: CHRONIC LYMPHOCYTIC LEUKAEMIA
     Dosage: 300MG WEEKLY
     Route: 042
     Dates: start: 20111102, end: 20120110

REACTIONS (2)
  - PNEUMONIA VIRAL [None]
  - HYPOXIA [None]
